FAERS Safety Report 5098269-6 (Version None)
Quarter: 2006Q3

REPORT INFORMATION
  Report Type: 
  Country: None (occurrence: None)
  Receive Date: 20060906
  Receipt Date: 20060619
  Transmission Date: 20061208
  Serious: No
  Sender: FDA-Public Use
  Company Number: US-GLAXOSMITHKLINE-A0609574A

PATIENT
  Sex: Female

DRUGS (5)
  1. REQUIP [Suspect]
     Indication: RESTLESS LEGS SYNDROME
     Dosage: 1MG PER DAY
     Route: 048
     Dates: start: 20060605
  2. LASIX [Concomitant]
  3. SYNTHROID [Concomitant]
  4. ULTRAM [Concomitant]
  5. VITAMIN D [Concomitant]

REACTIONS (1)
  - NAUSEA [None]
